FAERS Safety Report 24453184 (Version 2)
Quarter: 2024Q4

REPORT INFORMATION
  Report Type: Report from Study
  Country: US (occurrence: US)
  Receive Date: 20241017
  Receipt Date: 20241018
  Transmission Date: 20250115
  Serious: No
  Sender: ROCHE
  Company Number: US-ROCHE-3063904

PATIENT
  Age: 80 Year
  Sex: Female

DRUGS (3)
  1. RITUXAN [Suspect]
     Active Substance: RITUXIMAB
     Indication: Rheumatoid arthritis
     Dosage: 1000 MG IV DAY 1 AND DAY 15 EVERY 6 MONTHS, ANTICIPATED DATE OF TREATMENT: 14/APR/2022
     Route: 041
  2. RITUXAN [Suspect]
     Active Substance: RITUXIMAB
     Indication: Multiple sclerosis
     Dosage: VIAL, UNKNOWN
     Route: 041
  3. RITUXAN [Suspect]
     Active Substance: RITUXIMAB
     Indication: Sjogren^s syndrome

REACTIONS (3)
  - Fatigue [Unknown]
  - Gait disturbance [Unknown]
  - Ill-defined disorder [Unknown]
